FAERS Safety Report 22372363 (Version 1)
Quarter: 2023Q2

REPORT INFORMATION
  Report Type: Other
  Country: None (occurrence: US)
  Receive Date: 20230526
  Receipt Date: 20230526
  Transmission Date: 20230722
  Serious: Yes (Hospitalization, Other)
  Sender: FDA-Public Use
  Company Number: US-Zhejiang Jingxin Pharmaceutical Co., Ltd-2142033

PATIENT
  Age: 76 Year
  Sex: Female

DRUGS (1)
  1. LEVETIRACETAM [Suspect]
     Active Substance: LEVETIRACETAM
     Indication: Partial seizures
     Route: 065

REACTIONS (1)
  - Autoimmune hepatitis [Recovering/Resolving]
